FAERS Safety Report 10511658 (Version 1)
Quarter: 2014Q4

REPORT INFORMATION
  Report Type: Spontaneous
  Country: FR (occurrence: FR)
  Receive Date: 20141010
  Receipt Date: 20141010
  Transmission Date: 20150528
  Serious: Yes (Disabling, Congenital Anomaly, Other)
  Sender: FDA-Public Use
  Company Number: FR-ABBVIE-14P-056-1293256-00

PATIENT
  Sex: Male

DRUGS (1)
  1. DEPAKINE [Suspect]
     Active Substance: VALPROATE SODIUM
     Indication: MATERNAL EXPOSURE TIMING UNSPECIFIED
     Route: 064

REACTIONS (7)
  - Gross motor delay [Unknown]
  - Hypertelorism of orbit [Not Recovered/Not Resolved]
  - Foetal exposure during pregnancy [Unknown]
  - Cryptorchism [Not Recovered/Not Resolved]
  - Congenital anomaly [Unknown]
  - Dysmorphism [Not Recovered/Not Resolved]
  - Learning disorder [Not Recovered/Not Resolved]

NARRATIVE: CASE EVENT DATE: 1997
